FAERS Safety Report 19849482 (Version 1)
Quarter: 2021Q3

REPORT INFORMATION
  Report Type: Report from Study
  Country: JP (occurrence: JP)
  Receive Date: 20210918
  Receipt Date: 20210918
  Transmission Date: 20211014
  Serious: Yes (Death, Other)
  Sender: FDA-Public Use
  Company Number: JP-JNJFOC-A-CH2018-170459

PATIENT
  Age: 82 Year
  Sex: Female

DRUGS (15)
  1. ADCIRCA [Interacting]
     Active Substance: TADALAFIL
     Route: 048
     Dates: end: 20210424
  2. MAINTATE [Concomitant]
     Active Substance: BISOPROLOL FUMARATE
     Indication: HYPERTENSION
     Route: 048
  3. MAINTATE [Concomitant]
     Active Substance: BISOPROLOL FUMARATE
     Route: 048
     Dates: start: 20180518, end: 20210424
  4. PIMOBENDAN [Interacting]
     Active Substance: PIMOBENDAN
     Indication: RIGHT VENTRICULAR FAILURE
     Dosage: 2.5 MG, QD
     Route: 048
  5. TAKEPRON [Concomitant]
     Active Substance: LANSOPRAZOLE
     Indication: GASTROOESOPHAGEAL REFLUX DISEASE
     Route: 048
     Dates: start: 20180118, end: 20210424
  6. OPSUMIT [Suspect]
     Active Substance: MACITENTAN
     Indication: PULMONARY ARTERIAL HYPERTENSION
     Dosage: 10 MG, QD
     Route: 048
     Dates: start: 20171024
  7. OXYGEN. [Concomitant]
     Active Substance: OXYGEN
     Route: 055
     Dates: end: 20180315
  8. ADCIRCA [Interacting]
     Active Substance: TADALAFIL
     Indication: PULMONARY ARTERIAL HYPERTENSION
     Route: 048
  9. SPIRONOLACTONE. [Concomitant]
     Active Substance: SPIRONOLACTONE
     Indication: RIGHT VENTRICULAR FAILURE
     Route: 048
     Dates: start: 20180301, end: 20210424
  10. OPALMON [Concomitant]
     Active Substance: LIMAPROST
     Indication: PERIPHERAL ARTERY OCCLUSION
     Route: 048
     Dates: end: 20180308
  11. AZOSEMIDE [Concomitant]
     Active Substance: AZOSEMIDE
     Indication: RIGHT VENTRICULAR FAILURE
     Route: 048
     Dates: start: 20180518, end: 20210424
  12. PIMOBENDAN [Interacting]
     Active Substance: PIMOBENDAN
     Route: 048
     Dates: end: 20210424
  13. DIART [Concomitant]
     Indication: RIGHT VENTRICULAR FAILURE
     Route: 048
     Dates: end: 20180308
  14. CELECOX [Concomitant]
     Active Substance: CELECOXIB
     Indication: ARTHRALGIA
     Route: 048
     Dates: end: 20210424
  15. OXYGEN. [Concomitant]
     Active Substance: OXYGEN
     Route: 055
     Dates: end: 20180314

REACTIONS (18)
  - Pulmonary arterial hypertension [Fatal]
  - Platelet count decreased [Not Recovered/Not Resolved]
  - Dyspnoea exertional [Recovered/Resolved]
  - Condition aggravated [Recovering/Resolving]
  - Cardiac failure [Recovered/Resolved]
  - Oedema peripheral [Recovered/Resolved]
  - Orthopnoea [Recovered/Resolved]
  - Sclerema [Recovering/Resolving]
  - Red blood cell count decreased [Not Recovered/Not Resolved]
  - Drug interaction [Unknown]
  - Anaemia [Fatal]
  - Epistaxis [Not Recovered/Not Resolved]
  - Musculoskeletal stiffness [Recovering/Resolving]
  - Blood pressure decreased [Recovered/Resolved]
  - Aortic aneurysm rupture [Fatal]
  - Cardiac dysfunction [Recovered/Resolved]
  - Haemoglobin decreased [Not Recovered/Not Resolved]
  - Haematocrit decreased [Not Recovered/Not Resolved]

NARRATIVE: CASE EVENT DATE: 20180215
